FAERS Safety Report 7916111-X (Version None)
Quarter: 2011Q4

REPORT INFORMATION
  Report Type: 
  Country: None (occurrence: None)
  Receive Date: 20111116
  Receipt Date: 20111108
  Transmission Date: 20120403
  Serious: Yes (Hospitalization)
  Sender: FDA-Public Use
  Company Number: US-BIOGENIDEC-2010BI016616

PATIENT
  Age: 54 Year
  Sex: Male

DRUGS (2)
  1. TRAMADOL HCL [Concomitant]
     Indication: PAIN
  2. TYSABRI [Suspect]
     Indication: MULTIPLE SCLEROSIS
     Route: 042
     Dates: start: 20100428, end: 20100817

REACTIONS (10)
  - ASTHENIA [None]
  - PAIN [None]
  - HERPES ZOSTER [None]
  - MUSCLE SPASMS [None]
  - MUSCLE SPASTICITY [None]
  - HYPOTENSION [None]
  - DRUG INTOLERANCE [None]
  - MUSCULAR WEAKNESS [None]
  - INFECTION [None]
  - DYSSTASIA [None]
